FAERS Safety Report 4985835-9 (Version None)
Quarter: 2006Q2

REPORT INFORMATION
  Report Type: 
  Country: None (occurrence: None)
  Receive Date: 20060421
  Receipt Date: 20060410
  Transmission Date: 20061013
  Serious: Yes (Other)
  Sender: FDA-Public Use
  Company Number: 2006049881

PATIENT
  Age: 56 Year
  Sex: Female

DRUGS (1)
  1. TARTAR CONTROL LISTERINE MOUTHWASH (MENTHOL, METHYL SALICYLATE, EUCALY [Suspect]
     Indication: DENTAL DISORDER PROPHYLAXIS
     Dosage: UNSPECIFIED; ORAL
     Route: 048
     Dates: start: 20060301, end: 20060401

REACTIONS (2)
  - DEVICE BREAKAGE [None]
  - TOOTH FRACTURE [None]
